FAERS Safety Report 4936434-6 (Version None)
Quarter: 2006Q1

REPORT INFORMATION
  Report Type: 
  Country: None (occurrence: None)
  Receive Date: 20060302
  Receipt Date: 20060209
  Transmission Date: 20060701
  Serious: Yes (Other)
  Sender: FDA-Public Use
  Company Number: US_0508120917

PATIENT
  Age: 65 Year
  Sex: Female
  Weight: 59.9 kg

DRUGS (11)
  1. FORTEO [Suspect]
     Indication: OSTEOPOROSIS
     Dosage: 20 UG, DAILY (1/D)
     Dates: start: 20050401
  2. FORTEO [Concomitant]
  3. CALCIUM GLUCONATE [Concomitant]
  4. ATENOLOL [Concomitant]
  5. HYDROXYZINE HYDROCHLORIDE [Concomitant]
  6. MULTIVITAMINS (ASCORBIC ACID, ERGOCALCIFEROL, FOLIC ACID, NICOTINAMIDE [Concomitant]
  7. NASONEX [Concomitant]
  8. PREVACID [Concomitant]
  9. RANITIDINE [Concomitant]
  10. TRAMADOL HCL [Concomitant]
  11. ZOLOFT [Concomitant]

REACTIONS (2)
  - BLOOD ALKALINE PHOSPHATASE INCREASED [None]
  - HYPERCALCAEMIA [None]
